FAERS Safety Report 9326736 (Version 6)
Quarter: 2014Q2

REPORT INFORMATION
  Report Type: Report from Study
  Country: CA (occurrence: CA)
  Receive Date: 20130604
  Receipt Date: 20140416
  Transmission Date: 20141212
  Serious: Yes (Hospitalization, Other)
  Sender: FDA-Public Use
  Company Number: CA-ROCHE-1230647

PATIENT
  Age: 61 Year
  Sex: Male
  Weight: 115 kg

DRUGS (9)
  1. RITUXAN [Suspect]
     Indication: EVANS SYNDROME
     Route: 042
     Dates: start: 2007, end: 2007
  2. RITUXAN [Suspect]
     Route: 042
     Dates: start: 2009
  3. RITUXAN [Suspect]
     Route: 042
     Dates: start: 2011
  4. RITUXAN [Suspect]
     Route: 042
     Dates: start: 20140306
  5. PREDNISONE [Suspect]
     Indication: PRODUCT USED FOR UNKNOWN INDICATION
     Route: 065
     Dates: end: 2014
  6. WARFARIN [Concomitant]
     Dosage: PATIENT IS OFF FOR NOW UNTIL PLATELETS INCREASE
     Route: 065
  7. HYDROCHLOROTHIAZIDE [Concomitant]
  8. PROPRANOLOL [Concomitant]
     Route: 065
     Dates: start: 2011
  9. FOLIC ACID [Concomitant]

REACTIONS (12)
  - Immune thrombocytopenic purpura [Not Recovered/Not Resolved]
  - Neutropenia [Unknown]
  - Hypertension [Not Recovered/Not Resolved]
  - Platelet count decreased [Recovered/Resolved]
  - Haemoptysis [Recovering/Resolving]
  - Syncope [Not Recovered/Not Resolved]
  - Headache [Not Recovered/Not Resolved]
  - Tachycardia [Not Recovered/Not Resolved]
  - Swelling [Not Recovered/Not Resolved]
  - Off label use [Unknown]
  - Nasopharyngitis [Recovering/Resolving]
  - Skin irritation [Not Recovered/Not Resolved]
